FAERS Safety Report 5281341-5 (Version None)
Quarter: 2007Q1

REPORT INFORMATION
  Report Type: 
  Country: None (occurrence: None)
  Receive Date: 20070323
  Receipt Date: 20070323
  Transmission Date: 20070707
  Serious: Yes (Life-Threatening, Other)
  Sender: FDA-Public Use
  Company Number: None

PATIENT
  Age: 24 Year
  Sex: Female
  Weight: 47.6277 kg

DRUGS (1)
  1. CIPROFLOXACIN [Suspect]
     Indication: URINARY TRACT INFECTION
     Dosage: 250 MG 2 PER DAY, 3 DAYS PO
     Route: 048
     Dates: start: 20070120, end: 20070124

REACTIONS (16)
  - ANOREXIA [None]
  - ANXIETY [None]
  - ASTHENIA [None]
  - CHILLS [None]
  - DEPRESSION [None]
  - DIARRHOEA [None]
  - DRUG HYPERSENSITIVITY [None]
  - FATIGUE [None]
  - GASTROINTESTINAL DISORDER [None]
  - HEADACHE [None]
  - HYPOAESTHESIA [None]
  - INFLUENZA LIKE ILLNESS [None]
  - PARAESTHESIA [None]
  - PYREXIA [None]
  - SINUS CONGESTION [None]
  - VOMITING [None]
